FAERS Safety Report 9099362 (Version 1)
Quarter: 2013Q1

REPORT INFORMATION
  Report Type: Spontaneous
  Country: FR (occurrence: FR)
  Receive Date: 20130214
  Receipt Date: 20130214
  Transmission Date: 20140127
  Serious: Yes (Hospitalization)
  Sender: FDA-Public Use
  Company Number: FR-ASTRAZENECA-2013SE08712

PATIENT
  Age: 48 Year
  Sex: Female

DRUGS (8)
  1. XEROQUEL [Suspect]
     Indication: BIPOLAR DISORDER
     Route: 048
     Dates: start: 20121123, end: 20121207
  2. XEROQUEL [Suspect]
     Indication: BIPOLAR DISORDER
     Route: 048
     Dates: start: 20121231, end: 20130102
  3. LAMOTRIGINE [Suspect]
     Indication: BIPOLAR DISORDER
     Route: 048
     Dates: start: 20121123, end: 20121128
  4. LAMOTRIGINE [Suspect]
     Indication: BIPOLAR DISORDER
     Route: 048
     Dates: start: 20121129, end: 20121205
  5. IMOVANE [Concomitant]
     Route: 048
     Dates: end: 20121207
  6. VALIUM [Concomitant]
     Route: 048
     Dates: end: 20121207
  7. ABILIFY [Concomitant]
     Route: 048
     Dates: end: 20121114
  8. TERCIAN [Concomitant]
     Route: 048

REACTIONS (1)
  - Rash maculo-papular [Recovered/Resolved]
